FAERS Safety Report 11286862 (Version 1)
Quarter: 2015Q3

REPORT INFORMATION
  Report Type: Spontaneous
  Country: DE (occurrence: DE)
  Receive Date: 20150721
  Receipt Date: 20150721
  Transmission Date: 20151125
  Serious: Yes (Hospitalization)
  Sender: FDA-Public Use
  Company Number: DE-BAYER-2015-366521

PATIENT
  Age: 20 Year
  Sex: Female

DRUGS (1)
  1. JAYDESS [Suspect]
     Active Substance: LEVONORGESTREL
     Indication: CONTRACEPTION
     Dosage: 14 MCG/24HR, CONT
     Route: 015
     Dates: start: 20150608, end: 20150619

REACTIONS (5)
  - Abdominal pain [Recovered/Resolved]
  - Vaginal discharge [Recovered/Resolved]
  - Vomiting [Recovered/Resolved]
  - Salpingo-oophoritis [None]
  - Nausea [Recovered/Resolved]

NARRATIVE: CASE EVENT DATE: 20150615
